FAERS Safety Report 9434300 (Version 1)
Quarter: 2013Q3

REPORT INFORMATION
  Report Type: Report from Study
  Country: ES (occurrence: ES)
  Receive Date: 20130801
  Receipt Date: 20130801
  Transmission Date: 20140515
  Serious: Yes (Death, Other)
  Sender: FDA-Public Use
  Company Number: ES-ROCHE-1251589

PATIENT
  Sex: 0

DRUGS (2)
  1. RIBAVIRIN [Suspect]
     Indication: HEPATITIS C
     Dosage: INTENDED DOSE OF RIBAVIRIN WAS WEIGHT BASED (1000 MG IF WEIGHT WAS {75 KG, 1200 MG IF } OR EQUAL TO
     Route: 065
  2. PEGINTERFERON ALFA-2B [Suspect]
     Indication: HEPATITIS C
     Dosage: INTENDED DOSE OF PEGINTERFERON ALFA-2B WAS 1/5 MCG/KG/WEEK FOR INTENDED DURATION OF 48 WEEKS THERAPY
     Route: 065

REACTIONS (6)
  - Transplant rejection [Fatal]
  - Hepatic encephalopathy [Unknown]
  - Ascites [Unknown]
  - Aspergillus infection [Unknown]
  - Transplant rejection [Unknown]
  - Anaemia [Unknown]
